FAERS Safety Report 10226024 (Version 1)
Quarter: 2014Q2

REPORT INFORMATION
  Report Type: Spontaneous
  Country: US (occurrence: US)
  Receive Date: 20140609
  Receipt Date: 20140609
  Transmission Date: 20141212
  Serious: No
  Sender: FDA-Public Use
  Company Number: US-ASTELLAS-2013US004032

PATIENT
  Age: 66 Year
  Sex: Female

DRUGS (2)
  1. PROGRAF [Suspect]
     Indication: RENAL TRANSPLANT
     Route: 048
     Dates: start: 20000602, end: 20130404
  2. PROGRAF [Suspect]
     Indication: HYPERTENSION

REACTIONS (5)
  - Off label use [Unknown]
  - Headache [Unknown]
  - Dizziness [Unknown]
  - Nasal congestion [Unknown]
  - Abdominal distension [Unknown]
